FAERS Safety Report 12740059 (Version 2)
Quarter: 2017Q2

REPORT INFORMATION
  Report Type: Spontaneous
  Country: CA (occurrence: CA)
  Receive Date: 20160913
  Receipt Date: 20170424
  Transmission Date: 20170830
  Serious: Yes (Other)
  Sender: FDA-Public Use
  Company Number: CA-PFIZER INC-2998176

PATIENT
  Age: 52 Year

DRUGS (6)
  1. BACLOFEN. [Suspect]
     Active Substance: BACLOFEN
     Indication: PRODUCT USED FOR UNKNOWN INDICATION
     Dosage: 10.1 UG, UNK
     Route: 037
  2. CLONIDINE. [Suspect]
     Active Substance: CLONIDINE
     Indication: PRODUCT USED FOR UNKNOWN INDICATION
     Dosage: UNK
     Route: 037
  3. MORPHINE SULFATE. [Suspect]
     Active Substance: MORPHINE SULFATE
     Indication: PRODUCT USED FOR UNKNOWN INDICATION
     Dosage: 0.044 MG, UNK
     Route: 037
  4. BACLOFEN. [Suspect]
     Active Substance: BACLOFEN
     Dosage: 742.6 UG, UNK
     Route: 037
  5. BUPIVACAINE HCL [Suspect]
     Active Substance: BUPIVACAINE HYDROCHLORIDE
     Indication: PRODUCT USED FOR UNKNOWN INDICATION
     Dosage: SOLUTION BLOCK/INFILTRATION
     Route: 037
  6. MORPHINE SULFATE. [Suspect]
     Active Substance: MORPHINE SULFATE
     Dosage: 3.248 MG, UNK
     Route: 037

REACTIONS (5)
  - Asthenia [Unknown]
  - Drug withdrawal syndrome [Unknown]
  - Muscle spasticity [Unknown]
  - Hyperhidrosis [Unknown]
  - Pain [Unknown]
